FAERS Safety Report 20663678 (Version 4)
Quarter: 2022Q2

REPORT INFORMATION
  Report Type: Report from Study
  Country: US (occurrence: US)
  Receive Date: 20220401
  Receipt Date: 20220607
  Transmission Date: 20220720
  Serious: Yes (Other)
  Sender: FDA-Public Use
  Company Number: US-NOVARTISTESTPH-NVSC2022US074357

PATIENT
  Sex: Male

DRUGS (2)
  1. ENTRESTO [Suspect]
     Active Substance: SACUBITRIL\VALSARTAN
     Indication: Product used for unknown indication
     Dosage: 1 DOSAGE FORM, BID
     Route: 048
  2. METOPROLOL [Suspect]
     Active Substance: METOPROLOL
     Indication: Product used for unknown indication
     Dosage: UNK, (HIGHEST DOSE)
     Route: 065

REACTIONS (8)
  - Deafness [Unknown]
  - Nocturia [Unknown]
  - Joint swelling [Unknown]
  - Weight increased [Unknown]
  - Decreased activity [Unknown]
  - Hypotension [Unknown]
  - Photophobia [Unknown]
  - Product use in unapproved indication [Unknown]
